FAERS Safety Report 17607882 (Version 1)
Quarter: 2020Q1

REPORT INFORMATION
  Report Type: Report from Study
  Country: US (occurrence: US)
  Receive Date: 20200331
  Receipt Date: 20200331
  Transmission Date: 20200409
  Serious: Yes (Death, Hospitalization)
  Sender: FDA-Public Use
  Company Number: US-BAYER-2020-052840

PATIENT
  Age: 33 Year
  Sex: Female
  Weight: 59.86 kg

DRUGS (3)
  1. REMODULIN [Concomitant]
     Active Substance: TREPROSTINIL
     Dosage: UNK
  2. ADEMPAS [Suspect]
     Active Substance: RIOCIGUAT
     Indication: PULMONARY ARTERIAL HYPERTENSION
     Dosage: UNK
     Dates: start: 20190201
  3. ADEMPAS [Suspect]
     Active Substance: RIOCIGUAT
     Indication: PULMONARY ARTERIAL HYPERTENSION
     Dosage: 2 MG, TID
     Route: 048

REACTIONS (2)
  - Hospitalisation [None]
  - Death [Fatal]

NARRATIVE: CASE EVENT DATE: 20200322
